FAERS Safety Report 6948618-6 (Version None)
Quarter: 2010Q3

REPORT INFORMATION
  Report Type: 
  Country: None (occurrence: None)
  Receive Date: 20100828
  Receipt Date: 20091120
  Transmission Date: 20110219
  Serious: No
  Sender: FDA-Public Use
  Company Number: US-ABBOTT-09P-163-0607364-00

PATIENT
  Sex: Female
  Weight: 89.438 kg

DRUGS (4)
  1. NIASPAN [Suspect]
     Indication: DYSLIPIDAEMIA
     Dates: start: 20091028, end: 20091103
  2. LIPITOR [Concomitant]
     Indication: HYPERLIPIDAEMIA
  3. PLAVIX [Concomitant]
     Indication: CORONARY ARTERIAL STENT INSERTION
  4. ASPIRIN [Concomitant]
     Indication: CORONARY ARTERIAL STENT INSERTION

REACTIONS (2)
  - OEDEMA PERIPHERAL [None]
  - RASH MACULAR [None]
